FAERS Safety Report 17895878 (Version 3)
Quarter: 2021Q1

REPORT INFORMATION
  Report Type: Report from Study
  Country: US (occurrence: US)
  Receive Date: 20200615
  Receipt Date: 20210101
  Transmission Date: 20210419
  Serious: Yes (Other)
  Sender: FDA-Public Use
  Company Number: US-UCBSA-2020023458

PATIENT
  Sex: Female

DRUGS (3)
  1. KEPPRA [Suspect]
     Active Substance: LEVETIRACETAM
     Indication: EPILEPSY
     Dosage: 1000MG 1T QAM + 1.5T QPM
  2. KEPPRA [Suspect]
     Active Substance: LEVETIRACETAM
     Dosage: 1000MG 1T QAM + 1.5T QPM AND 1 EXTRA PILL
  3. LACOSAMIDE. [Suspect]
     Active Substance: LACOSAMIDE
     Indication: EPILEPSY
     Dosage: 100 MILLIGRAM, 2X/DAY (BID)
     Route: 048

REACTIONS (7)
  - Intracranial aneurysm [Not Recovered/Not Resolved]
  - Cerebrovascular accident [Unknown]
  - Headache [Not Recovered/Not Resolved]
  - Product use issue [Unknown]
  - Dizziness [Not Recovered/Not Resolved]
  - Confusional state [Unknown]
  - Intentional overdose [Unknown]
